FAERS Safety Report 8349586-5 (Version None)
Quarter: 2012Q2

REPORT INFORMATION
  Report Type: 
  Country: None (occurrence: None)
  Receive Date: 20120510
  Receipt Date: 20120427
  Transmission Date: 20120825
  Serious: Yes (Other)
  Sender: FDA-Public Use
  Company Number: PHEH2012US009060

PATIENT
  Sex: Female

DRUGS (8)
  1. REVLIMID [Concomitant]
     Dosage: 5 MG, QOD
  2. REVLIMID [Concomitant]
     Dosage: 5 MG, DAILY
     Dates: start: 20090929, end: 20100513
  3. VIDAZA [Concomitant]
     Dosage: UNK UKN, UNK
     Dates: end: 20101004
  4. DESFERAL [Suspect]
     Dosage: 1500 MG
  5. REVLIMID [Concomitant]
     Dosage: 5 MG, QOD
     Dates: start: 20090114
  6. REVLIMID [Concomitant]
     Dosage: 5 MG, DAILY
     Dates: start: 20090331
  7. REVLIMID [Concomitant]
     Dosage: 5 MG 2 OUT OF 3 DAYS
  8. AZACITIDINE [Concomitant]
     Dosage: UNK UKN, UNK
     Dates: start: 20100614, end: 20101005

REACTIONS (7)
  - OEDEMA PERIPHERAL [None]
  - PANCYTOPENIA [None]
  - ASTHENIA [None]
  - IRON OVERLOAD [None]
  - RENAL FAILURE [None]
  - RASH [None]
  - URINARY TRACT INFECTION [None]
